FAERS Safety Report 9676006 (Version 1)
Quarter: 2013Q4

REPORT INFORMATION
  Report Type: Report from Study
  Country: KR (occurrence: KR)
  Receive Date: 20131107
  Receipt Date: 20131107
  Transmission Date: 20140711
  Serious: Yes (Other)
  Sender: FDA-Public Use
  Company Number: PHHY2013KR124531

PATIENT
  Age: 32 Year
  Sex: Male

DRUGS (28)
  1. AMN107 [Suspect]
     Indication: CHRONIC MYELOID LEUKAEMIA
     Dosage: 800 MG, DAILY
     Dates: start: 20120802, end: 20120813
  2. AMN107 [Suspect]
     Dosage: 400 MG, DAILY
     Dates: start: 20120820, end: 20120917
  3. AMN107 [Suspect]
     Dosage: 800 MG, DAILY
     Dates: start: 20120924, end: 20121016
  4. AMN107 [Suspect]
     Dosage: 400 MG, DAILY
     Dates: start: 20121017, end: 20121030
  5. AMN107 [Suspect]
     Dosage: 800 MG, DAILY
     Dates: start: 20121031
  6. FAMOTIDINE [Concomitant]
     Indication: ABDOMINAL PAIN
     Dosage: 40 MG, UNK
     Route: 042
     Dates: start: 20120917, end: 20120919
  7. SODIUM ALGINATE [Concomitant]
     Indication: PROPHYLAXIS
     Dosage: 120 ML, UNK
     Route: 048
     Dates: start: 20120917, end: 20120923
  8. LACTULOSE [Concomitant]
     Indication: CONSTIPATION
     Dosage: 45 ML, UNK
     Route: 048
     Dates: start: 20120916, end: 20120916
  9. LACTULOSE [Concomitant]
     Dosage: 90 ML, UNK
     Route: 048
     Dates: start: 20120925, end: 20120926
  10. MORPHINE HCL [Concomitant]
     Indication: ABDOMINAL PAIN
     Dosage: 5 MG, UNK
     Route: 042
     Dates: start: 20120916, end: 20120918
  11. TRAMADOL HCL [Concomitant]
     Indication: ABDOMINAL PAIN
     Dosage: 50 MG, UNK
     Route: 042
     Dates: start: 20120916, end: 20120924
  12. DOMPERIDONE [Concomitant]
     Indication: ABDOMINAL PAIN
     Dosage: 30 MG, UNK
     Route: 048
     Dates: start: 20120916, end: 20120916
  13. TEPRENONE [Concomitant]
     Indication: PEPTIC ULCER
     Dosage: 150 MG, UNK
     Route: 048
     Dates: start: 20120916, end: 20120917
  14. PHENERMIN [Concomitant]
     Dosage: 4 MG, UNK
     Route: 042
     Dates: start: 20120813, end: 20120813
  15. PHENERMIN [Concomitant]
     Dosage: 4 MG, UNK
     Route: 042
     Dates: start: 20120820, end: 20120820
  16. LEVOFLOXACIN [Concomitant]
     Indication: UPPER RESPIRATORY TRACT INFECTION
     Dosage: 500 MG, UNK
     Route: 048
     Dates: start: 20120820, end: 20130824
  17. CEFTAZIDIME [Concomitant]
     Dosage: 600 MG, UNK
     Route: 042
     Dates: start: 20120924, end: 20120926
  18. METOCLOPRAMIDE HCL [Concomitant]
     Indication: NAUSEA
     Dosage: 60 MG, UNK
     Route: 048
     Dates: start: 20120918, end: 20120918
  19. METOCLOPRAMIDE HCL [Concomitant]
     Dosage: 60 MG, UNK
     Route: 042
     Dates: start: 20120923, end: 20120926
  20. ULTRACET [Concomitant]
     Indication: PAIN
     Dosage: 217 MG, UNK
     Route: 048
     Dates: start: 20120924
  21. MAGNESIUM OXIDE [Concomitant]
     Indication: CONSTIPATION
     Dosage: 3000 MG, UNK
     Route: 048
     Dates: start: 20120918, end: 20120926
  22. SCOPOLAMINE [Concomitant]
     Indication: ABDOMINAL PAIN
     Dosage: 20 MG, UNK
     Route: 042
     Dates: start: 20120918, end: 20120918
  23. LANSOPRAZOLE [Concomitant]
     Indication: PEPTIC ULCER
     Dosage: 60 MG, UNK
     Route: 048
     Dates: start: 20120919, end: 20121016
  24. MOSAPRIDE [Concomitant]
     Indication: DYSPEPSIA
     Dosage: 15 MG, UNK
     Route: 048
     Dates: start: 20120926, end: 20121002
  25. ZALTOPROFEN [Concomitant]
     Indication: ABDOMINAL PAIN
     Dosage: 240 MG, UNK
     Route: 048
     Dates: start: 20120916, end: 20120917
  26. ESOMEPRAZOLE [Concomitant]
     Indication: GASTROINTESTINAL DISORDER
     Dosage: 40 MG, UNK
     Route: 042
     Dates: start: 20120917, end: 20120917
  27. BOEHMITE [Concomitant]
     Indication: GASTRITIS
     Dosage: 3PK
     Route: 048
     Dates: start: 20120917, end: 20120923
  28. ITOPRIDE [Concomitant]
     Indication: ABDOMINAL PAIN
     Dosage: UNK
     Route: 048
     Dates: start: 20120918, end: 20120919

REACTIONS (2)
  - Anaemia [Recovered/Resolved]
  - Neutropenia [Recovered/Resolved]
